FAERS Safety Report 9611114 (Version 1)
Quarter: 2013Q4

REPORT INFORMATION
  Report Type: Report from Study
  Country: FR (occurrence: FR)
  Receive Date: 20131009
  Receipt Date: 20131009
  Transmission Date: 20140711
  Serious: Yes (Other)
  Sender: FDA-Public Use
  Company Number: FR-GILEAD-2013-0084965

PATIENT
  Age: 57 Year
  Sex: Male

DRUGS (8)
  1. ADEFOVIR DIPIVOXIL [Suspect]
     Indication: HEPATITIS B
     Dosage: 10 MG, QD
     Dates: start: 20071213
  2. ZEFFIX [Concomitant]
     Indication: HEPATITIS B
     Dosage: 100 MG, QD
     Dates: start: 200705
  3. CALTRATE                           /00944201/ [Concomitant]
     Dosage: 600 MG, QD
  4. MEGAMAG                            /01093501/ [Concomitant]
     Dosage: UNK, QD
  5. HAVLANE [Concomitant]
     Indication: INSOMNIA
     Dosage: 1 DF, QD
     Dates: start: 1992
  6. BETAHISTINE [Concomitant]
     Indication: PROMOTION OF PERIPHERAL CIRCULATION
     Dosage: 8 MG, QD
     Dates: start: 201210
  7. INEXIUM                            /01479302/ [Concomitant]
     Indication: GASTROOESOPHAGEAL REFLUX DISEASE
     Dosage: 40 MG, QD
     Dates: start: 200705
  8. LASILIX                            /00032601/ [Concomitant]
     Indication: DIURETIC THERAPY
     Dosage: 40 MG, QD
     Dates: start: 200705

REACTIONS (1)
  - Hepatocellular carcinoma [Unknown]
